FAERS Safety Report 19003175 (Version 2)
Quarter: 2021Q3

REPORT INFORMATION
  Report Type: Report from Study
  Country: DE (occurrence: DE)
  Receive Date: 20210312
  Receipt Date: 20210817
  Transmission Date: 20211014
  Serious: Yes (Other)
  Sender: FDA-Public Use
  Company Number: DE-PFIZER INC-2021231314

PATIENT
  Age: 41 Year
  Sex: Male

DRUGS (7)
  1. NORDAZEPAM [Suspect]
     Active Substance: NORDAZEPAM
  2. LORAZEPAM. [Suspect]
     Active Substance: LORAZEPAM
  3. PREGABALIN. [Suspect]
     Active Substance: PREGABALIN
  4. CODEINE [Suspect]
     Active Substance: CODEINE
  5. DIAZEPAM. [Suspect]
     Active Substance: DIAZEPAM
  6. MORPHINE [Suspect]
     Active Substance: MORPHINE
  7. BUPRENORPHINE. [Suspect]
     Active Substance: BUPRENORPHINE

REACTIONS (12)
  - Emotional poverty [Unknown]
  - Miosis [Unknown]
  - Dysarthria [Unknown]
  - Delusion [Unknown]
  - Mood swings [Unknown]
  - Confusional state [Unknown]
  - Bradyphrenia [Unknown]
  - Somnolence [Unknown]
  - Disorientation [Unknown]
  - Amnesia [Unknown]
  - Homicidal ideation [Unknown]
  - Gait disturbance [Unknown]
